FAERS Safety Report 6760569-9 (Version None)
Quarter: 2010Q2

REPORT INFORMATION
  Report Type: 
  Country: None (occurrence: None)
  Receive Date: 20100608
  Receipt Date: 20100601
  Transmission Date: 20101027
  Serious: Yes (Other)
  Sender: FDA-Public Use
  Company Number: MX-PFIZER INC-2010069307

PATIENT
  Age: 68 Year
  Sex: Male

DRUGS (1)
  1. GEODON [Suspect]
     Indication: SCHIZOPHRENIA
     Dosage: 80 MG, 1X/DAY
     Route: 048
     Dates: start: 20091101

REACTIONS (2)
  - CHEST PAIN [None]
  - PAIN IN EXTREMITY [None]
